FAERS Safety Report 12644490 (Version 2)
Quarter: 2016Q3

REPORT INFORMATION
  Report Type: Spontaneous
  Country: AU (occurrence: AU)
  Receive Date: 20160811
  Receipt Date: 20160822
  Transmission Date: 20161109
  Serious: Yes (Other)
  Sender: FDA-Public Use
  Company Number: AU-FRESENIUS KABI-FK201605388

PATIENT

DRUGS (2)
  1. ROPIVACAINHYDROCHLORID KABI 10 MG / ML [Suspect]
     Active Substance: ROPIVACAINE HYDROCHLORIDE
     Indication: LOCAL ANAESTHESIA
     Route: 031
  2. HYALURONIDASE [Concomitant]
     Active Substance: HYALURONIDASE
     Route: 031

REACTIONS (1)
  - Macular ischaemia [Unknown]
